FAERS Safety Report 9094214 (Version 2)
Quarter: 2013Q1

REPORT INFORMATION
  Report Type: Report from Study
  Country: BE (occurrence: BE)
  Receive Date: 20130201
  Receipt Date: 20130321
  Transmission Date: 20140127
  Serious: Yes (Hospitalization)
  Sender: FDA-Public Use
  Company Number: BE-009507513-1301BEL012922

PATIENT
  Age: 69 Year
  Sex: Male
  Weight: 47.4 kg

DRUGS (16)
  1. LOSARTAN POTASSIUM (+) HYDROCHLOROTHIAZIDE [Suspect]
     Indication: NEPHROGENIC ANAEMIA
     Dosage: UNK
     Route: 048
     Dates: start: 20091116, end: 20130107
  2. LOSARTAN POTASSIUM [Suspect]
     Indication: NEPHROGENIC ANAEMIA
     Dosage: UNK
     Route: 048
     Dates: start: 20130107, end: 20130115
  3. METHOXY POLYETHYLENE GLYCOL-EPOETIN BETA [Suspect]
     Dosage: 100 MICROGRAM, QM
     Route: 042
     Dates: start: 20110215
  4. BARNIDIPINE HYDROCHLORIDE [Suspect]
     Dosage: UNK
     Dates: start: 20080916
  5. MOXONIDINE [Suspect]
     Indication: NEPHROGENIC ANAEMIA
     Dosage: UNK
     Dates: start: 20120330, end: 20130114
  6. MOXONIDINE [Suspect]
     Dosage: UNK
     Dates: start: 20080330
  7. MOXONIDINE [Suspect]
     Dosage: DOSE WAS DOUBLED
     Dates: start: 20121217
  8. MOXONIDINE [Suspect]
     Dosage: DAILY DOSE 0.2 MG
  9. ASCORBIC ACID [Concomitant]
     Dosage: UNK
     Dates: start: 20110121, end: 20130114
  10. CHOLECALCIFEROL [Concomitant]
     Dosage: 1 DF, QW
     Dates: start: 20090921
  11. SEVELAMER [Concomitant]
     Dosage: DAILY DOSE 800 MG
     Dates: start: 20110603
  12. CALCIUM ACETATE [Concomitant]
     Dosage: DAILY DOSE 667 MG
     Dates: start: 20110527
  13. LORAZEPAM [Concomitant]
     Dosage: DAILY DOSE 1 MG
     Dates: start: 20111104, end: 20130113
  14. CLOBAZAM [Concomitant]
     Dosage: DAILY DOSE 10 MG
     Dates: start: 20090218
  15. ATORVASTATIN CALCIUM [Concomitant]
     Dosage: 20 MG, UNK
     Dates: start: 20090921
  16. ASPIRIN [Concomitant]
     Dosage: 80 MG, UNK
     Dates: start: 20080813

REACTIONS (1)
  - Arrhythmia [Recovered/Resolved]
